FAERS Safety Report 19153543 (Version 1)
Quarter: 2021Q2

REPORT INFORMATION
  Report Type: Spontaneous
  Country: US (occurrence: US)
  Receive Date: 20210416
  Receipt Date: 20210416
  Transmission Date: 20210717
  Serious: Yes (Hospitalization)
  Sender: FDA-Public Use
  Company Number: None

PATIENT
  Sex: Male

DRUGS (16)
  1. LOSARTAN POT [Concomitant]
     Active Substance: LOSARTAN POTASSIUM
  2. DAPSONE. [Concomitant]
     Active Substance: DAPSONE
  3. MYCOPHENOLIC [Suspect]
     Active Substance: MYCOPHENOLIC ACID
     Indication: RENAL TRANSPLANT
     Route: 048
     Dates: start: 20170607
  4. TACROLIMUS. [Suspect]
     Active Substance: TACROLIMUS
     Indication: RENAL TRANSPLANT
     Dosage: 1MG QAM, 2MG QPM
     Route: 048
     Dates: start: 20170607
  5. FLONASE [Concomitant]
     Active Substance: FLUTICASONE PROPIONATE
  6. METOPROL SUC [Concomitant]
  7. GLUCOSAMINE [Concomitant]
     Active Substance: GLUCOSAMINE
  8. TACROLIMUS. [Concomitant]
     Active Substance: TACROLIMUS
  9. CLOTRIM/BETA [Concomitant]
  10. MAGNESIUM [Concomitant]
     Active Substance: MAGNESIUM
  11. ATORVASTAIN [Concomitant]
     Active Substance: ATORVASTATIN
  12. PREDNISONE. [Concomitant]
     Active Substance: PREDNISONE
  13. FLECAINIDE [Concomitant]
     Active Substance: FLECAINIDE
  14. COLACE [Concomitant]
     Active Substance: DOCUSATE SODIUM
  15. ELIQUIS [Concomitant]
     Active Substance: APIXABAN
  16. LEVOTHYROXIN [Concomitant]
     Active Substance: LEVOTHYROXINE

REACTIONS (4)
  - Cystitis [None]
  - Renal disorder [None]
  - Therapy change [None]
  - Blood disorder [None]
